FAERS Safety Report 13710951 (Version 1)
Quarter: 2017Q3

REPORT INFORMATION
  Report Type: Spontaneous
  Country: US (occurrence: US)
  Receive Date: 20170701
  Receipt Date: 20170701
  Transmission Date: 20171127
  Serious: No
  Sender: FDA-Public Use
  Company Number: None

PATIENT
  Age: 72 Year
  Sex: Female

DRUGS (1)
  1. ENBREL [Suspect]
     Active Substance: ETANERCEPT

REACTIONS (5)
  - Drug ineffective [None]
  - Pain [None]
  - Tendonitis [None]
  - Sleep disorder [None]
  - Synovial disorder [None]

NARRATIVE: CASE EVENT DATE: 20170701
